FAERS Safety Report 11200553 (Version 1)
Quarter: 2015Q2

REPORT INFORMATION
  Report Type: Spontaneous
  Country: US (occurrence: US)
  Receive Date: 20150618
  Receipt Date: 20150618
  Transmission Date: 20150821
  Serious: Yes (Death)
  Sender: FDA-Public Use
  Company Number: US-SA-2015SA082097

PATIENT
  Age: 67 Year
  Sex: Female

DRUGS (8)
  1. ACETAMINOPHEN. [Suspect]
     Active Substance: ACETAMINOPHEN
     Route: 065
  2. TRAMADOL [Suspect]
     Active Substance: TRAMADOL
     Route: 065
  3. IBUPROFEN SALT NOT SPECIFIED [Suspect]
     Active Substance: IBUPROFEN
     Route: 065
  4. FLURAZEPAM [Suspect]
     Active Substance: FLURAZEPAM\FLURAZEPAM HYDROCHLORIDE
     Route: 065
  5. BUSPIRONE HYDROCHLORIDE. [Suspect]
     Active Substance: BUSPIRONE HYDROCHLORIDE
     Route: 065
  6. TOPIRAMATE. [Suspect]
     Active Substance: TOPIRAMATE
     Route: 065
  7. CAFFEINE. [Suspect]
     Active Substance: CAFFEINE
     Route: 065
  8. DIPHENHYDRAMINE [Suspect]
     Active Substance: DIPHENHYDRAMINE
     Route: 065

REACTIONS (8)
  - Nuclear magnetic resonance imaging brain abnormal [Fatal]
  - Loss of consciousness [Fatal]
  - Coma [Fatal]
  - Anoxia [Fatal]
  - Hypoperfusion [Fatal]
  - Overdose [Fatal]
  - Cerebellar infarction [Fatal]
  - Depressed level of consciousness [Fatal]
